FAERS Safety Report 4955720-7 (Version None)
Quarter: 2006Q1

REPORT INFORMATION
  Report Type: 
  Country: None (occurrence: None)
  Receive Date: 20060328
  Receipt Date: 20060301
  Transmission Date: 20060701
  Serious: Yes (Disabling)
  Sender: FDA-Public Use
  Company Number: DE-ROCHE-438379

PATIENT
  Age: 48 Year
  Sex: Male

DRUGS (3)
  1. CAPECITABINE [Suspect]
     Dosage: REPORTED AS 28 DAYS WITH 2 INTAKES.
     Route: 048
     Dates: start: 20051109
  2. CETUXIMAB [Suspect]
     Dosage: FREQUENCY NOT REPORTED
     Route: 042
     Dates: start: 20051101
  3. OXALIPLATIN [Suspect]
     Dosage: FREQUENCY NOT REPORTED
     Route: 042
     Dates: start: 20051109

REACTIONS (3)
  - DEAFNESS [None]
  - TINNITUS [None]
  - VERTIGO [None]
